FAERS Safety Report 25728953 (Version 1)
Quarter: 2025Q3

REPORT INFORMATION
  Report Type: Spontaneous
  Country: CA (occurrence: CA)
  Receive Date: 20250826
  Receipt Date: 20250826
  Transmission Date: 20251020
  Serious: Yes (Death, Other)
  Sender: AMGEN
  Company Number: CA-AMGEN-CANSP2025167626

PATIENT

DRUGS (4)
  1. RITUXIMAB [Suspect]
     Active Substance: RITUXIMAB
     Indication: Diffuse large B-cell lymphoma
     Route: 065
  2. RITUXIMAB [Suspect]
     Active Substance: RITUXIMAB
     Indication: Central nervous system lymphoma
  3. METHOTREXATE [Suspect]
     Active Substance: METHOTREXATE
     Indication: Diffuse large B-cell lymphoma
     Route: 065
  4. METHOTREXATE [Suspect]
     Active Substance: METHOTREXATE
     Indication: Central nervous system lymphoma

REACTIONS (16)
  - Dementia [Fatal]
  - Interstitial lung disease [Fatal]
  - Haemorrhage intracranial [Fatal]
  - Pneumonia [Fatal]
  - Central nervous system lymphoma [Fatal]
  - Diffuse large B-cell lymphoma [Fatal]
  - Unevaluable event [Fatal]
  - Pulmonary toxicity [Unknown]
  - Febrile neutropenia [Unknown]
  - Clostridium difficile colitis [Unknown]
  - Bacteraemia [Unknown]
  - Acute kidney injury [Unknown]
  - Infection [Unknown]
  - Cognitive disorder [Unknown]
  - Toxicity to various agents [Unknown]
  - Therapy partial responder [Unknown]
